FAERS Safety Report 4766035-4 (Version None)
Quarter: 2005Q3

REPORT INFORMATION
  Report Type: 
  Country: None (occurrence: None)
  Receive Date: 20050912
  Receipt Date: 20050831
  Transmission Date: 20060218
  Serious: Yes (Hospitalization)
  Sender: FDA-Public Use
  Company Number: FR-GLAXOSMITHKLINE-B0392387A

PATIENT
  Age: 35 Year
  Sex: Female
  Weight: 75 kg

DRUGS (6)
  1. TRIZIVIR [Suspect]
     Indication: HIV INFECTION
     Route: 048
     Dates: start: 20040701, end: 20050415
  2. COMBIVIR [Suspect]
     Indication: HIV INFECTION
     Dosage: 2TAB PER DAY
     Route: 048
     Dates: start: 20050415, end: 20050722
  3. KALETRA [Suspect]
     Indication: HIV INFECTION
     Dosage: 3TAB TWICE PER DAY
     Route: 048
     Dates: start: 20050415, end: 20050722
  4. ZIDOVUDINE [Suspect]
     Indication: ANTIVIRAL PROPHYLAXIS
     Route: 042
     Dates: start: 20050722, end: 20050722
  5. CLAMOXYL [Concomitant]
     Route: 048
     Dates: start: 20050401
  6. BETAMETASONE [Concomitant]
     Route: 048

REACTIONS (4)
  - COMPLICATION OF DELIVERY [None]
  - OLIGOHYDRAMNIOS [None]
  - PREGNANCY [None]
  - PREMATURE LABOUR [None]
